FAERS Safety Report 4288922-6 (Version None)
Quarter: 2004Q1

REPORT INFORMATION
  Report Type: 
  Country: None (occurrence: None)
  Receive Date: 20040205
  Receipt Date: 20040126
  Transmission Date: 20041129
  Serious: Yes (Death)
  Sender: FDA-Public Use
  Company Number: 2004AP00489

PATIENT
  Age: 52 Year
  Sex: Female

DRUGS (2)
  1. MARCAINE [Suspect]
     Dosage: 2.5 ML ONCE IT
     Route: 037
     Dates: start: 20040121, end: 20040121
  2. MIDAZOLAM HCL [Concomitant]

REACTIONS (6)
  - BLOOD PRESSURE INCREASED [None]
  - BRADYCARDIA [None]
  - CARDIAC ARREST [None]
  - CONVULSION [None]
  - HEART RATE INCREASED [None]
  - PULMONARY OEDEMA [None]
